FAERS Safety Report 4608557-2 (Version None)
Quarter: 2005Q1

REPORT INFORMATION
  Report Type: 
  Country: None (occurrence: None)
  Receive Date: 20050311
  Receipt Date: 20050311
  Transmission Date: 20050727
  Serious: Yes (Life-Threatening, Hospitalization)
  Sender: FDA-Public Use
  Company Number: None

PATIENT
  Sex: Female

DRUGS (2)
  1. PENICILLIN VK [Suspect]
     Indication: INFECTION
     Dosage: 500 MG Q6H  ORAL
     Route: 048
     Dates: start: 20050221, end: 20050221
  2. PENICILLIN VK [Suspect]
     Indication: SELF-MEDICATION
     Dosage: 500 MG Q6H  ORAL
     Route: 048
     Dates: start: 20050221, end: 20050221

REACTIONS (1)
  - ANAPHYLACTIC REACTION [None]
